FAERS Safety Report 20291105 (Version 1)
Quarter: 2022Q1

REPORT INFORMATION
  Report Type: Spontaneous
  Country: RO (occurrence: RO)
  Receive Date: 20220104
  Receipt Date: 20220104
  Transmission Date: 20220423
  Serious: Yes (Other)
  Sender: FDA-Public Use
  Company Number: None

PATIENT
  Age: 37 Year
  Sex: Female

DRUGS (1)
  1. CEFUROXIME AXETIL [Suspect]
     Active Substance: CEFUROXIME AXETIL
     Indication: Enterococcal infection
     Dosage: UNK
     Route: 065

REACTIONS (8)
  - Neutrophilia [Unknown]
  - Pustular psoriasis [Not Recovered/Not Resolved]
  - Monocytosis [Unknown]
  - Leukocytosis [Unknown]
  - Acute generalised exanthematous pustulosis [Not Recovered/Not Resolved]
  - Tachycardia [Unknown]
  - Hypocalcaemia [Unknown]
  - Hypoalbuminaemia [Unknown]
